FAERS Safety Report 4507517-X (Version None)
Quarter: 2004Q4

REPORT INFORMATION
  Report Type: 
  Country: None (occurrence: None)
  Receive Date: 20041118
  Receipt Date: 20041020
  Transmission Date: 20050328
  Serious: Yes (Hospitalization)
  Sender: FDA-Public Use
  Company Number: 2004227935DE

PATIENT
  Age: 64 Year
  Sex: Female
  Weight: 67 kg

DRUGS (3)
  1. EPIRUBICIN HYDROCHLORIDE (EPIRUBICIN HYDROCHLORIDE) [Suspect]
     Indication: BREAST CANCER
     Dosage: 100 MG (QD INTERVAL: CYCLE 4), INTRAVENOUS
     Route: 042
     Dates: start: 20040720, end: 20040727
  2. ENDOXAN (CYCLOPHOSPHAMIDE) [Suspect]
     Indication: BREAST CANCER
     Dosage: 100 MG (14 DAYS), ORAL
     Route: 048
     Dates: start: 20040720
  3. FLUOROURACIL [Suspect]
     Indication: BREAST CANCER
     Dosage: 840 MG (QD INTERVAL: CYCLE 4), INTRAVENOUS
     Route: 042
     Dates: start: 20040720, end: 20040727

REACTIONS (6)
  - ASTHENIA [None]
  - BRONCHITIS [None]
  - NAUSEA [None]
  - STOMATITIS [None]
  - VERTIGO [None]
  - VOMITING [None]
